FAERS Safety Report 25572280 (Version 2)
Quarter: 2025Q3

REPORT INFORMATION
  Report Type: Report from Study
  Country: CA (occurrence: CA)
  Receive Date: 20250717
  Receipt Date: 20250812
  Transmission Date: 20251021
  Serious: Yes (Other)
  Sender: NOVARTIS
  Company Number: CA-SANDOZ-SDZ2023CA048752

PATIENT
  Sex: Male

DRUGS (2)
  1. FINGOLIMOD HYDROCHLORIDE [Suspect]
     Active Substance: FINGOLIMOD HYDROCHLORIDE
     Indication: Relapsing-remitting multiple sclerosis
     Dosage: 0.5 MG, QD (0.5 MG 2 DOSE EVERY N/A N/A)
     Route: 048
     Dates: start: 20201202
  2. GILENYA [Suspect]
     Active Substance: FINGOLIMOD HYDROCHLORIDE
     Indication: Relapsing-remitting multiple sclerosis
     Dosage: 0.5 MG, QD (1 EVERY 1 DAY)
     Route: 048

REACTIONS (4)
  - Relapsing-remitting multiple sclerosis [Unknown]
  - Condition aggravated [Unknown]
  - General physical health deterioration [Unknown]
  - Treatment failure [Unknown]
